FAERS Safety Report 8002938-5 (Version None)
Quarter: 2011Q4

REPORT INFORMATION
  Report Type: 
  Country: None (occurrence: None)
  Receive Date: 20111222
  Receipt Date: 20110330
  Transmission Date: 20120403
  Serious: No
  Sender: FDA-Public Use
  Company Number: US-GLAXOSMITHKLINE-A0921491A

PATIENT
  Age: 76 Year
  Sex: Male
  Weight: 92.3 kg

DRUGS (6)
  1. PIOGLITAZONE HYDROCHLORIDE [Concomitant]
     Indication: DIABETES MELLITUS
     Dosage: 15MG PER DAY
  2. AVODART [Suspect]
     Indication: MICTURITION DISORDER
  3. LORAZEPAM [Concomitant]
     Indication: ANXIETY
  4. NIASPAN [Suspect]
     Indication: BLOOD CHOLESTEROL INCREASED
     Dosage: 500MG PER DAY
     Dates: start: 20110207
  5. LOSARTAN POTASSIUM [Concomitant]
     Indication: RENAL DISORDER
  6. WARFARIN SODIUM [Concomitant]

REACTIONS (2)
  - ABDOMINAL DISCOMFORT [None]
  - ABDOMINAL DISTENSION [None]
